FAERS Safety Report 10290857 (Version 1)
Quarter: 2014Q3

REPORT INFORMATION
  Report Type: Spontaneous
  Country: US (occurrence: None)
  Receive Date: 20140708
  Receipt Date: 20140708
  Transmission Date: 20150326
  Serious: No
  Sender: FDA-Public Use
  Company Number: None

PATIENT
  Age: 66 Year
  Sex: Male
  Weight: 88.91 kg

DRUGS (1)
  1. CLINDAMYCIN 300MG [Suspect]
     Active Substance: CLINDAMYCIN PHOSPHATE
     Indication: TOOTH ABSCESS
     Dosage: 1 CAPSULE, THREE TIMES DAILY, TAKEN BY MOUTH
     Route: 048

REACTIONS (2)
  - Abdominal pain upper [None]
  - Abdominal pain [None]

NARRATIVE: CASE EVENT DATE: 20140626
